FAERS Safety Report 21710717 (Version 1)
Quarter: 2022Q4

REPORT INFORMATION
  Report Type: Spontaneous
  Country: RU (occurrence: None)
  Receive Date: 20221212
  Receipt Date: 20221212
  Transmission Date: 20230113
  Serious: Yes (Other)
  Sender: FDA-Public Use
  Company Number: RU-ROCHE-3235061

PATIENT
  Age: 54 Year
  Sex: Female

DRUGS (18)
  1. BEVACIZUMAB [Suspect]
     Active Substance: BEVACIZUMAB
     Indication: Breast cancer
     Route: 065
     Dates: start: 201608, end: 201705
  2. BEVACIZUMAB [Suspect]
     Active Substance: BEVACIZUMAB
     Indication: Metastases to eye
     Route: 065
     Dates: start: 201804, end: 201903
  3. BEVACIZUMAB [Suspect]
     Active Substance: BEVACIZUMAB
     Indication: Metastases to bone
  4. ZOLEDRONIC ACID [Suspect]
     Active Substance: ZOLEDRONIC ACID
     Indication: Breast cancer
     Route: 065
     Dates: start: 201406, end: 201602
  5. ZOLEDRONIC ACID [Suspect]
     Active Substance: ZOLEDRONIC ACID
     Indication: Metastases to eye
     Route: 065
     Dates: start: 201603, end: 201607
  6. ZOLEDRONIC ACID [Suspect]
     Active Substance: ZOLEDRONIC ACID
     Indication: Metastases to eye
     Route: 065
     Dates: start: 201608, end: 201705
  7. ZOLEDRONIC ACID [Suspect]
     Active Substance: ZOLEDRONIC ACID
     Route: 065
     Dates: start: 201804, end: 201903
  8. VINORELBINE [Suspect]
     Active Substance: VINORELBINE TARTRATE
     Indication: Breast cancer
     Route: 065
     Dates: start: 201804, end: 201903
  9. VINORELBINE [Suspect]
     Active Substance: VINORELBINE TARTRATE
     Indication: Metastases to eye
  10. VINORELBINE [Suspect]
     Active Substance: VINORELBINE TARTRATE
     Indication: Metastases to eye
  11. PACLITAXEL [Suspect]
     Active Substance: PACLITAXEL
     Indication: Breast cancer
     Route: 065
     Dates: start: 201608, end: 201705
  12. PACLITAXEL [Suspect]
     Active Substance: PACLITAXEL
     Indication: Metastases to eye
  13. PACLITAXEL [Suspect]
     Active Substance: PACLITAXEL
     Indication: Metastases to bone
  14. ANASTROZOLE [Concomitant]
     Active Substance: ANASTROZOLE
     Dates: start: 201406, end: 201602
  15. FULVESTRANT [Concomitant]
     Active Substance: FULVESTRANT
     Dates: start: 201603, end: 201607
  16. FULVESTRANT [Concomitant]
     Active Substance: FULVESTRANT
     Dates: start: 201706, end: 201804
  17. EVEROLIMUS [Concomitant]
     Active Substance: EVEROLIMUS
     Dates: start: 201706, end: 201804
  18. ABEMACICLIB [Concomitant]
     Active Substance: ABEMACICLIB
     Dosage: 200 MG BID-150 MG BID,
     Dates: start: 201903, end: 202004

REACTIONS (5)
  - Polyneuropathy [Unknown]
  - Disease progression [Unknown]
  - Neutropenia [Unknown]
  - Pneumonitis [Unknown]
  - Diarrhoea [Unknown]
